FAERS Safety Report 16382557 (Version 1)
Quarter: 2019Q2

REPORT INFORMATION
  Report Type: Spontaneous
  Country: US (occurrence: US)
  Receive Date: 20190603
  Receipt Date: 20190603
  Transmission Date: 20190711
  Serious: Yes (Hospitalization)
  Sender: FDA-Public Use
  Company Number: US-BAYER-2019-102899

PATIENT
  Age: 79 Year
  Sex: Male

DRUGS (1)
  1. VITRAKVI [Suspect]
     Active Substance: LAROTRECTINIB
     Indication: LUNG CANCER METASTATIC
     Dosage: 100 MG, BID
     Route: 048
     Dates: start: 20190523

REACTIONS (2)
  - Pneumothorax [Not Recovered/Not Resolved]
  - Pruritus [Not Recovered/Not Resolved]

NARRATIVE: CASE EVENT DATE: 20190524
